FAERS Safety Report 4653413-7 (Version None)
Quarter: 2005Q2

REPORT INFORMATION
  Report Type: 
  Country: None (occurrence: None)
  Receive Date: 20050503
  Receipt Date: 20050420
  Transmission Date: 20051028
  Serious: Yes (Hospitalization)
  Sender: FDA-Public Use
  Company Number: 200500748

PATIENT
  Age: 60 Year
  Sex: Male
  Weight: 65 kg

DRUGS (6)
  1. VELCADE [Suspect]
     Indication: MULTIPLE MYELOMA
     Dosage: 1.30 MG, 2/WEEK, IV BOLUS
     Route: 040
     Dates: start: 20050208
  2. FUROSEMIDE [Concomitant]
  3. ALLOPURINOL [Concomitant]
  4. LISINOPRIL [Concomitant]
  5. WARFARIN SODIUM [Concomitant]
  6. VITAMINS [Concomitant]

REACTIONS (4)
  - CANDIDIASIS [None]
  - IMMUNOSUPPRESSION [None]
  - INTERSTITIAL LUNG DISEASE [None]
  - PRODUCTIVE COUGH [None]
